FAERS Safety Report 5212031-2 (Version None)
Quarter: 2007Q1

REPORT INFORMATION
  Report Type: 
  Country: None (occurrence: None)
  Receive Date: 20070117
  Receipt Date: 20070117
  Transmission Date: 20070707
  Serious: Yes (Hospitalization)
  Sender: FDA-Public Use
  Company Number: None

PATIENT
  Age: 28 Year
  Sex: Female
  Weight: 65.7716 kg

DRUGS (1)
  1. PROGESTERONE IN OIL INJ [Suspect]
     Indication: IN VITRO FERTILISATION
     Dosage: 50 MG ONCE DAILY IM
     Route: 030
     Dates: start: 20060821

REACTIONS (14)
  - CONSTIPATION [None]
  - CREPITATIONS [None]
  - DRUG EXPOSURE DURING PREGNANCY [None]
  - DRUG INEFFECTIVE [None]
  - DYSPEPSIA [None]
  - EOSINOPHILIA [None]
  - HYPOXIA [None]
  - LEUKOCYTOSIS [None]
  - PNEUMONIA [None]
  - PREGNANCY [None]
  - RALES [None]
  - RESPIRATORY ALKALOSIS [None]
  - TACHYCARDIA [None]
  - TACHYPNOEA [None]
